FAERS Safety Report 20490975 (Version 2)
Quarter: 2022Q3

REPORT INFORMATION
  Report Type: Spontaneous
  Country: US (occurrence: None)
  Receive Date: 20220218
  Receipt Date: 20220816
  Transmission Date: 20221026
  Serious: Yes (Other)
  Sender: FDA-Public Use
  Company Number: 2022A069051

PATIENT
  Age: 16288 Day
  Sex: Female
  Weight: 83.5 kg

DRUGS (22)
  1. NEXIUM [Suspect]
     Active Substance: ESOMEPRAZOLE MAGNESIUM
     Indication: Gastrooesophageal reflux disease
     Route: 048
     Dates: start: 2012, end: 2016
  2. NEXIUM [Suspect]
     Active Substance: ESOMEPRAZOLE MAGNESIUM
     Indication: Gastrooesophageal reflux disease
     Route: 048
     Dates: start: 2004, end: 2013
  3. PROTONIX [Suspect]
     Active Substance: PANTOPRAZOLE SODIUM
     Indication: Gastrooesophageal reflux disease
     Route: 065
     Dates: start: 2012, end: 2016
  4. PROTONIX [Suspect]
     Active Substance: PANTOPRAZOLE SODIUM
     Indication: Gastrooesophageal reflux disease
     Route: 065
     Dates: start: 2012, end: 2016
  5. PROTONIX [Suspect]
     Active Substance: PANTOPRAZOLE SODIUM
     Indication: Gastrooesophageal reflux disease
     Dosage: GENERIC
     Route: 065
     Dates: start: 2012, end: 2016
  6. VANCOMYCIN [Concomitant]
     Active Substance: VANCOMYCIN
     Indication: Infection
     Dates: start: 2012
  7. LISINOPRIL [Concomitant]
     Active Substance: LISINOPRIL
     Indication: Hypertension
     Dates: start: 2012, end: 2015
  8. OLMESARTAN [Concomitant]
     Active Substance: OLMESARTAN
     Indication: Hypertension
     Dates: start: 2012, end: 2013
  9. VALSARTAN [Concomitant]
     Active Substance: VALSARTAN
     Indication: Hypertension
     Dates: start: 2016
  10. HYDROCHLOROTHIAZIDE [Concomitant]
     Active Substance: HYDROCHLOROTHIAZIDE
     Indication: Hypertension
     Dates: start: 2016
  11. SPIRONOLACTONE [Concomitant]
     Active Substance: SPIRONOLACTONE
     Indication: Hypertension
     Dates: start: 2015
  12. ATORVASTATIN [Concomitant]
     Active Substance: ATORVASTATIN
     Indication: Blood cholesterol increased
     Dates: start: 2016
  13. PRAVASTATIN [Concomitant]
     Active Substance: PRAVASTATIN
     Indication: Blood cholesterol increased
     Dates: start: 2013
  14. HYDRALAZINE [Concomitant]
     Active Substance: HYDRALAZINE HYDROCHLORIDE
     Indication: Hypertension
     Dates: start: 2012, end: 2016
  15. ASPIRIN [Concomitant]
     Active Substance: ASPIRIN
     Indication: Blood cholesterol increased
     Dates: start: 2000
  16. VITAMIN C [Concomitant]
     Active Substance: ASCORBIC ACID
     Indication: Vitamin C deficiency
     Dates: start: 2000
  17. VITAMIN D3 [Concomitant]
     Active Substance: CHOLECALCIFEROL
     Indication: Vitamin D deficiency
     Dates: start: 2000
  18. PEPCID [Concomitant]
     Active Substance: FAMOTIDINE
     Dates: start: 2002, end: 2010
  19. TAGAMET HB [Concomitant]
     Active Substance: CIMETIDINE
     Dates: start: 2002, end: 2010
  20. ZANTAC [Concomitant]
     Active Substance: RANITIDINE HYDROCHLORIDE
     Dates: start: 2002, end: 2010
  21. TUMS [Concomitant]
     Active Substance: CALCIUM CARBONATE
     Dates: start: 2000, end: 2004
  22. PEPTO-BISMOL [Concomitant]
     Active Substance: BISMUTH SUBSALICYLATE
     Dates: start: 2000, end: 2004

REACTIONS (3)
  - Acute kidney injury [Not Recovered/Not Resolved]
  - Chronic kidney disease [Not Recovered/Not Resolved]
  - Renal failure [Not Recovered/Not Resolved]

NARRATIVE: CASE EVENT DATE: 20150416
